FAERS Safety Report 24388504 (Version 1)
Quarter: 2024Q4

REPORT INFORMATION
  Report Type: Spontaneous
  Country: NP (occurrence: NP)
  Receive Date: 20241002
  Receipt Date: 20241002
  Transmission Date: 20250115
  Serious: Yes (Death)
  Sender: PFIZER
  Company Number: NP-PFIZER INC-PV202300140018

PATIENT
  Age: 79 Year
  Sex: Female

DRUGS (2)
  1. XALKORI [Suspect]
     Active Substance: CRIZOTINIB
     Indication: Non-small cell lung cancer
     Dosage: 2 X 250MG CAPSULES
  2. XALKORI [Suspect]
     Active Substance: CRIZOTINIB
     Dosage: 2 X 250MG CAPSULES

REACTIONS (3)
  - Death [Fatal]
  - Diarrhoea [Unknown]
  - Asthenia [Unknown]

NARRATIVE: CASE EVENT DATE: 20230810
